FAERS Safety Report 9560707 (Version 2)
Quarter: 2013Q3

REPORT INFORMATION
  Report Type: Spontaneous
  Country: US (occurrence: US)
  Receive Date: 20130927
  Receipt Date: 20130927
  Transmission Date: 20140515
  Serious: No
  Sender: FDA-Public Use
  Company Number: US-PFIZER INC-2013178395

PATIENT
  Sex: Female

DRUGS (5)
  1. ZIPRASIDONE HCL [Suspect]
     Dosage: UNK
  2. LITHIUM [Concomitant]
     Indication: BIPOLAR DISORDER
     Dosage: UNK
  3. SYNTHROID [Concomitant]
     Indication: HYPOTHYROIDISM
     Dosage: UNK
  4. NIACIN [Concomitant]
     Dosage: UNK
  5. LIPITOR [Concomitant]
     Dosage: UNK

REACTIONS (2)
  - Muscle spasms [Unknown]
  - Anaemia [Unknown]
